FAERS Safety Report 18649740 (Version 1)
Quarter: 2020Q4

REPORT INFORMATION
  Report Type: Spontaneous
  Country: FR (occurrence: FR)
  Receive Date: 20201222
  Receipt Date: 20201222
  Transmission Date: 20210114
  Serious: Yes (Hospitalization)
  Sender: FDA-Public Use
  Company Number: FR-MYLANLABS-2020M1103646

PATIENT
  Sex: Male

DRUGS (1)
  1. BUPRENORPHINE. [Suspect]
     Active Substance: BUPRENORPHINE
     Indication: POST-TRAUMATIC PAIN
     Dosage: 40 MILLIGRAM
     Route: 065
     Dates: start: 2012

REACTIONS (7)
  - Nausea [Unknown]
  - Toxicity to various agents [Unknown]
  - Dizziness [Unknown]
  - Bradycardia [Unknown]
  - Intentional product misuse [Unknown]
  - Overdose [Unknown]
  - Vomiting [Unknown]
